FAERS Safety Report 5164816-9 (Version None)
Quarter: 2006Q4

REPORT INFORMATION
  Report Type: 
  Country: None (occurrence: None)
  Receive Date: 20061205
  Receipt Date: 20061127
  Transmission Date: 20070319
  Serious: Yes (Hospitalization)
  Sender: FDA-Public Use
  Company Number: 2006CG01950

PATIENT
  Age: 71 Year
  Sex: Female

DRUGS (3)
  1. NEXIUM [Suspect]
     Route: 048
     Dates: start: 20060601, end: 20060701
  2. PREVISCAN [Concomitant]
     Route: 048
  3. SEREVENT [Concomitant]
     Route: 055

REACTIONS (1)
  - THROMBOCYTOPENIC PURPURA [None]
